FAERS Safety Report 10234710 (Version 1)
Quarter: 2014Q2

REPORT INFORMATION
  Report Type: Spontaneous
  Country: US (occurrence: None)
  Receive Date: 20140506
  Receipt Date: 20140506
  Transmission Date: 20141212
  Serious: Yes (Other)
  Sender: FDA-Public Use
  Company Number: 1265664

PATIENT
  Age: 91 Year
  Sex: Female

DRUGS (4)
  1. AVASTIN (BEVACIZUMAB) [Suspect]
     Indication: PRODUCT USED FOR UNKNOWN INDICATION
  2. NORVASC (AMLODIPINE BESILATE) [Concomitant]
  3. PROTONIX (UNITED STATES) (PANTOPRAZOLE SODIUM) [Concomitant]
  4. MACRODANTIN (NITROFURANTOIN) [Concomitant]

REACTIONS (4)
  - Dermatitis exfoliative [None]
  - Erythema [None]
  - Skin exfoliation [None]
  - Rash generalised [None]
